FAERS Safety Report 7457394-2 (Version None)
Quarter: 2011Q2

REPORT INFORMATION
  Report Type: 
  Country: None (occurrence: None)
  Receive Date: 20110504
  Receipt Date: 20100707
  Transmission Date: 20111010
  Serious: Yes (Other)
  Sender: FDA-Public Use
  Company Number: US-SANOFI-AVENTIS-2010SA039597

PATIENT
  Age: 51 Year
  Sex: Female

DRUGS (2)
  1. OPTICLICK [Suspect]
     Indication: TYPE 1 DIABETES MELLITUS
     Dates: start: 20030101
  2. APIDRA [Suspect]
     Indication: TYPE 1 DIABETES MELLITUS
     Dosage: SLIDING SCALE
     Route: 058
     Dates: start: 20030101

REACTIONS (2)
  - HYPOGLYCAEMIA [None]
  - PRODUCT QUALITY ISSUE [None]
